FAERS Safety Report 24612741 (Version 1)
Quarter: 2024Q4

REPORT INFORMATION
  Report Type: Spontaneous
  Country: ES (occurrence: ES)
  Receive Date: 20241113
  Receipt Date: 20241113
  Transmission Date: 20250114
  Serious: Yes (Hospitalization)
  Sender: MYLAN
  Company Number: ES-MYLANLABS-2024M1100911

PATIENT
  Age: 40 Year
  Sex: Male

DRUGS (6)
  1. TRANEXAMIC ACID [Suspect]
     Active Substance: TRANEXAMIC ACID
     Indication: Acquired factor VIII deficiency
     Dosage: 1 GRAM, LATER CONTINUED, INTRAVENOUS  BOLUS
     Route: 042
  2. TRANEXAMIC ACID [Suspect]
     Active Substance: TRANEXAMIC ACID
     Dosage: 1 MILLIGRAM/KILOGRAM, QH, INTRAVENOUS INFUSION
     Route: 042
  3. VITAMIN K [Suspect]
     Active Substance: PHYTONADIONE
     Indication: Acquired factor VIII deficiency
     Dosage: UNK
     Route: 065
  4. PROTHROMBIN COMPLEX CONCENTRATE [Suspect]
     Active Substance: COAGULATION FACTOR IX HUMAN\COAGULATION FACTOR VII HUMAN\COAGULATION FACTOR X HUMAN\PROTEIN C\PROTEI
     Indication: Acquired factor VIII deficiency
     Dosage: 500 INTERNATIONAL UNIT
     Route: 065
  5. PROTAMINE [Suspect]
     Active Substance: PROTAMINE
     Indication: Acquired factor VIII deficiency
     Dosage: 300 MILLIGRAM
     Route: 065
  6. HEPARIN [Concomitant]
     Active Substance: HEPARIN SODIUM
     Indication: Anticoagulant therapy
     Dosage: UNK
     Route: 065

REACTIONS (1)
  - Drug ineffective [Unknown]
